FAERS Safety Report 5076326-8 (Version None)
Quarter: 2006Q3

REPORT INFORMATION
  Report Type: 
  Country: None (occurrence: None)
  Receive Date: 20060725
  Receipt Date: 20060518
  Transmission Date: 20061208
  Serious: No
  Sender: FDA-Public Use
  Company Number: 200613445BWH

PATIENT
  Age: 70 Year
  Sex: Male

DRUGS (7)
  1. NEXAVAR [Suspect]
     Indication: RENAL CELL CARCINOMA STAGE UNSPECIFIED
     Dosage: 400 MG, BID, ORAL
     Route: 048
     Dates: start: 20060516
  2. TOPROL-XL [Concomitant]
  3. ACCUPRIL [Concomitant]
  4. GLYBURIDE [Concomitant]
  5. LASIX [Concomitant]
  6. ALLOPURINOL [Concomitant]
  7. PREVACID [Concomitant]

REACTIONS (1)
  - HYPERTENSION [None]
